FAERS Safety Report 9228644 (Version 1)
Quarter: 2013Q2

REPORT INFORMATION
  Report Type: Report from Study
  Country: FR (occurrence: FR)
  Receive Date: 20130412
  Receipt Date: 20130412
  Transmission Date: 20140414
  Serious: Yes (Hospitalization)
  Sender: FDA-Public Use
  Company Number: FR-ROCHE-1212173

PATIENT
  Age: 75 Year
  Sex: Female
  Weight: 80 kg

DRUGS (3)
  1. HEPARIN [Suspect]
     Indication: PRODUCT USED FOR UNKNOWN INDICATION
     Route: 042
     Dates: start: 20120201, end: 20120206
  2. COUMADINE [Concomitant]
     Route: 048
     Dates: start: 20120203
  3. TENECTEPLASE [Suspect]
     Indication: PULMONARY EMBOLISM
     Route: 040
     Dates: start: 20120201, end: 20120201

REACTIONS (1)
  - Haematuria [Recovered/Resolved]
